FAERS Safety Report 21994427 (Version 1)
Quarter: 2023Q1

REPORT INFORMATION
  Report Type: Spontaneous
  Country: FR (occurrence: FR)
  Receive Date: 20230215
  Receipt Date: 20230215
  Transmission Date: 20230418
  Serious: Yes (Other)
  Sender: FDA-Public Use
  Company Number: FR-SAMSUNG BIOEPIS-SB-2023-03923

PATIENT
  Sex: Female

DRUGS (2)
  1. IMRALDI [Suspect]
     Active Substance: ADALIMUMAB
     Indication: Rheumatoid arthritis
     Dosage: 40 MILLIGRAM/ 0.8 MILLILITER; THREE YEARS AGO
     Route: 058
  2. IMRALDI [Suspect]
     Active Substance: ADALIMUMAB
     Dosage: RECEIVING LMRALDI 40MG/ 0.4ML SINCE JANUARY
     Route: 058

REACTIONS (3)
  - Peripheral swelling [Unknown]
  - Diabetes mellitus [Unknown]
  - Incorrect dose administered [Unknown]
